FAERS Safety Report 11913673 (Version 2)
Quarter: 2016Q1

REPORT INFORMATION
  Report Type: Spontaneous
  Country: US (occurrence: US)
  Receive Date: 20160113
  Receipt Date: 20160115
  Transmission Date: 20160526
  Serious: No
  Sender: FDA-Public Use
  Company Number: US-PFIZER INC-2013105566

PATIENT
  Age: 46 Year
  Sex: Female

DRUGS (33)
  1. LYRICA [Suspect]
     Active Substance: PREGABALIN
     Indication: FIBROMYALGIA
  2. ENBREL [Concomitant]
     Active Substance: ETANERCEPT
     Dosage: UNK
  3. FLEXERIL [Concomitant]
     Active Substance: CYCLOBENZAPRINE HYDROCHLORIDE
     Indication: FIBROMYALGIA
     Dosage: 10 MG, 2X/DAY
  4. TYLENOL ARTHRITIS PAIN [Concomitant]
     Active Substance: ACETAMINOPHEN
  5. PROPANOLOL [Concomitant]
     Active Substance: PROPRANOLOL HYDROCHLORIDE
     Indication: HYPERTENSION
     Dosage: 20 MG, 1X/DAY (AT AM)
  6. RELPAX [Concomitant]
     Active Substance: ELETRIPTAN HYDROBROMIDE
     Indication: MIGRAINE
     Dosage: 40 MG, AS NEEDED (USUALLY TWICE A WEEK)
  7. KLONOPIN [Concomitant]
     Active Substance: CLONAZEPAM
     Indication: ANXIETY
     Dosage: 0.5 MG, 2X/DAY (0.5MG 1 AT AM AND PM)
  8. PERCOCET [Concomitant]
     Active Substance: ACETAMINOPHEN\OXYCODONE HYDROCHLORIDE
     Indication: MIGRAINE
     Dosage: 325 MG, 2X/DAY
  9. LIDOCAINE. [Concomitant]
     Active Substance: LIDOCAINE
     Indication: ARTHRITIS
  10. LYRICA [Suspect]
     Active Substance: PREGABALIN
     Indication: NEUROPATHY PERIPHERAL
     Dosage: 225 MG, 2X/DAY
  11. METHOTREXATE [Concomitant]
     Active Substance: METHOTREXATE
     Indication: PSORIATIC ARTHROPATHY
     Dosage: 25MG OF 1.0ML INJECTION; 1 INJECTION EVERY WEEK
  12. PERCOCET [Concomitant]
     Active Substance: ACETAMINOPHEN\OXYCODONE HYDROCHLORIDE
     Indication: ARTHRALGIA
     Dosage: 325 MG, 3X/DAY
  13. LOVASTATIN. [Concomitant]
     Active Substance: LOVASTATIN
     Indication: BLOOD CHOLESTEROL INCREASED
     Dosage: 40 MG, 1X/DAY (IN AM)
  14. LIDOCAINE. [Concomitant]
     Active Substance: LIDOCAINE
     Indication: ARTHRALGIA
     Dosage: 4% CREAM APPLY 3 TIMES A DAY
  15. PLAQUENIL [Concomitant]
     Active Substance: HYDROXYCHLOROQUINE SULFATE
     Indication: PSORIATIC ARTHROPATHY
     Dosage: 200 MG, DAILY
  16. LYRICA [Suspect]
     Active Substance: PREGABALIN
     Indication: MORTON^S NEURALGIA
     Dosage: 500 MG, DAILY (2-100MG IN AM AND 3-100MG IN PM)
     Route: 048
  17. HUMIRA [Concomitant]
     Active Substance: ADALIMUMAB
     Indication: PSORIATIC ARTHROPATHY
     Dosage: 40 MG/ 0.1 ML INJECTION ONCE EVERY 2 WEEKS)
  18. CIMETIDINE [Concomitant]
     Active Substance: CIMETIDINE
     Indication: PROPHYLAXIS
     Dosage: 800 MG, UNK
  19. DESONIDE. [Concomitant]
     Active Substance: DESONIDE
     Indication: PSORIASIS
     Dosage: UNK (0.5% LOTION)
  20. SYNTHROID [Concomitant]
     Active Substance: LEVOTHYROXINE SODIUM
     Indication: HYPOTHYROIDISM
     Dosage: 50 UG, 1X/DAY (EVERY MORNING)
  21. METHOTREXATE [Concomitant]
     Active Substance: METHOTREXATE
     Dosage: 25 MG INJECTION OF .8 MG ONCE A WEEK
  22. ZOLOFT [Concomitant]
     Active Substance: SERTRALINE HYDROCHLORIDE
     Indication: DEPRESSION
     Dosage: 200 MG, 1X/DAY (100MG, 2 AT AM)
  23. LIDOCAINE. [Concomitant]
     Active Substance: LIDOCAINE
     Indication: NEUROPATHY PERIPHERAL
  24. TOPAMAX [Concomitant]
     Active Substance: TOPIRAMATE
     Indication: MIGRAINE
     Dosage: 200 MG, UNK
  25. PHENERGAN [Concomitant]
     Active Substance: PROMETHAZINE HYDROCHLORIDE
     Indication: MIGRAINE
  26. LEUCOVORIN CA [Concomitant]
     Dosage: 10 MG, 1 PILLL MORNING AFTER METHOTREXATE INJECTION
  27. FOLIC ACID. [Concomitant]
     Active Substance: FOLIC ACID
     Indication: PROPHYLAXIS
     Dosage: 1 MG, UNK
  28. TRIAMCINOLONE [Concomitant]
     Active Substance: TRIAMCINOLONE
     Indication: PSORIASIS
     Dosage: UNK (1%)
  29. LUXIQ [Concomitant]
     Active Substance: BETAMETHASONE VALERATE
     Indication: PSORIASIS
     Dosage: UNK (FOAM 0.12% )
  30. PERCOCET [Concomitant]
     Active Substance: ACETAMINOPHEN\OXYCODONE HYDROCHLORIDE
     Indication: PSORIATIC ARTHROPATHY
  31. PERCOCET [Concomitant]
     Active Substance: ACETAMINOPHEN\OXYCODONE HYDROCHLORIDE
     Indication: INTERVERTEBRAL DISC INJURY
  32. PREDNISONE. [Concomitant]
     Active Substance: PREDNISONE
     Indication: PSORIATIC ARTHROPATHY
     Dosage: 4 MG, 1X/DAY
  33. PHENERGAN [Concomitant]
     Active Substance: PROMETHAZINE HYDROCHLORIDE
     Indication: NAUSEA
     Dosage: 25 MG, UNK

REACTIONS (4)
  - Myalgia [Unknown]
  - Gait disturbance [Unknown]
  - Hypoaesthesia [Unknown]
  - Burning sensation [Unknown]
